FAERS Safety Report 16667324 (Version 15)
Quarter: 2020Q1

REPORT INFORMATION
  Report Type: Spontaneous
  Country: US (occurrence: US)
  Receive Date: 20190805
  Receipt Date: 20200318
  Transmission Date: 20200409
  Serious: Yes (Hospitalization, Other)
  Sender: FDA-Public Use
  Company Number: US-PFIZER INC-2019329470

PATIENT
  Age: 74 Year
  Sex: Female
  Weight: 66.67 kg

DRUGS (29)
  1. PHILLIPS [Concomitant]
     Active Substance: DOCUSATE SODIUM
     Dosage: 500 MG, UNK
     Route: 048
  2. VITAMIN D3 [Concomitant]
     Active Substance: CHOLECALCIFEROL
     Dosage: 25 UG, DAILY (25 MCG (1,000 UNIT) CAPSULE, TAKE 1 CAPSULE BY MOUTH DAILY)
     Route: 048
  3. TYLENOL [Concomitant]
     Active Substance: ACETAMINOPHEN
     Dosage: UNK
  4. IMITREX [Concomitant]
     Active Substance: SUMATRIPTAN SUCCINATE
     Indication: HEADACHE
     Dosage: UNK, AS NEEDED
  5. DIAZEPAM. [Concomitant]
     Active Substance: DIAZEPAM
     Indication: ANXIETY
  6. DITROPAN [Concomitant]
     Active Substance: OXYBUTYNIN CHLORIDE
     Indication: BLADDER DISORDER
     Dosage: 15 MG, 1X/DAY
  7. LEVOTHYROXINE. [Concomitant]
     Active Substance: LEVOTHYROXINE
     Dosage: 125 UG, 1X/DAY
  8. ZOLOFT [Concomitant]
     Active Substance: SERTRALINE HYDROCHLORIDE
     Indication: DEPRESSION
     Dosage: 100 MG, 1X/DAY
  9. SUMATRIPTAN SUCCINATE. [Concomitant]
     Active Substance: SUMATRIPTAN SUCCINATE
     Indication: MIGRAINE
     Dosage: UNK
  10. IBUPROFEN. [Concomitant]
     Active Substance: IBUPROFEN
     Indication: MIGRAINE
     Dosage: 200 MG, UNK
  11. ZOLOFT [Concomitant]
     Active Substance: SERTRALINE HYDROCHLORIDE
     Dosage: 100 MG, DAILY
     Route: 048
  12. AMITRIPTYLINE [Concomitant]
     Active Substance: AMITRIPTYLINE
     Dosage: 10 MG, UNK
  13. SPIRIVA RESPIMAT [Concomitant]
     Active Substance: TIOTROPIUM BROMIDE
     Dosage: UNK, DAILY (1.25 MCG/ACTUATION INHALATION, TAKE 2 INHALATION DAILY)
  14. DIAZEPAM. [Concomitant]
     Active Substance: DIAZEPAM
     Indication: SLEEP DISORDER
     Dosage: 10 MG, 1X/DAY
     Route: 048
  15. LEVOTHYROXINE. [Concomitant]
     Active Substance: LEVOTHYROXINE
     Dosage: 125 UG, DAILY (ONE TAB IN AM)
  16. TRAZODONE [Concomitant]
     Active Substance: TRAZODONE HYDROCHLORIDE
     Indication: DEPRESSION
     Dosage: 1.5 DF, 1X/DAY [HALF AN HOUR BEFORE BED. 150MG TABLET; ONE AND A HALF TABLETS]
  17. DESYREL [Concomitant]
     Active Substance: TRAZODONE HYDROCHLORIDE
     Dosage: 225 MG, 1X/DAY ((ONE AND ONE HALF TAB BEFORE BEDTIME))
  18. AMITRIPTYLINE [Concomitant]
     Active Substance: AMITRIPTYLINE
     Dosage: 25 MG, UNK
  19. IMITREX [Concomitant]
     Active Substance: SUMATRIPTAN SUCCINATE
     Indication: MIGRAINE
     Dosage: 0.5 ML, UNK (6MG/0.5ML SUBCUTANEOUS KIT, INJECT 0.5ML INTO THE SKIN AT ONSET OF HEADACHE)
     Route: 058
  20. ALBUTEROL SULFATE. [Concomitant]
     Active Substance: ALBUTEROL SULFATE
     Dosage: UNK, AS NEEDED ((90 MCG/ACTUATION INHALER, USE 2 PUFFS EVERY 6 HOURS AS NEEDED))
     Route: 055
  21. ALEVE [Concomitant]
     Active Substance: NAPROXEN SODIUM
     Dosage: 220 MG, AS NEEDED (TAKE 1 TABLET BY MOUTH 3 TIMES A DAY AS NEEDED)
     Route: 048
  22. ELMIRON [Concomitant]
     Active Substance: PENTOSAN POLYSULFATE SODIUM
     Dosage: 200 MG, 2X/DAY(2 CAPSULES BY MOUTH TWICE DAILY)
     Route: 048
  23. ASPIRIN EC [Concomitant]
     Active Substance: ASPIRIN
     Dosage: 81 MG, DAILY
     Route: 048
  24. RELPAX [Suspect]
     Active Substance: ELETRIPTAN HYDROBROMIDE
     Indication: MIGRAINE
     Dosage: 40 MG, AS NEEDED WITH FOOD
     Route: 048
     Dates: end: 201905
  25. ELMIRON [Concomitant]
     Active Substance: PENTOSAN POLYSULFATE SODIUM
     Indication: BLADDER DISORDER
     Dosage: 100 MG, 2X/DAY
  26. SUMATRIPTAN SUCCINATE. [Concomitant]
     Active Substance: SUMATRIPTAN SUCCINATE
     Indication: HEADACHE
     Dosage: 0.5 ML, UNK(6MG/0.5ML SUBCUTANEOUS KIT, INJECT 0.5 ML INTO THE SKIN AT ONSET OF HEADACHE)
     Route: 058
  27. VALIUM [Concomitant]
     Active Substance: DIAZEPAM
     Dosage: 10 MG, 1X/DAY (2 TABLETS BY MOUTH AT BEDIME)
     Route: 048
  28. PEPCID [Concomitant]
     Active Substance: FAMOTIDINE
     Dosage: 20 MG, AS NEEDED (TAKE 1 TABLET BY MOUTH DAILY BEFORE MEAL AS NEEDED)
     Route: 048
  29. DITROPAN [Concomitant]
     Active Substance: OXYBUTYNIN CHLORIDE
     Dosage: 15 MG, DAILY (TAKE ONE TABLET DAILY)

REACTIONS (24)
  - Hemiparesis [Not Recovered/Not Resolved]
  - Pain [Not Recovered/Not Resolved]
  - Hypoaesthesia [Not Recovered/Not Resolved]
  - Drug dependence [Unknown]
  - Nerve injury [Not Recovered/Not Resolved]
  - Dyspnoea [Not Recovered/Not Resolved]
  - Thinking abnormal [Not Recovered/Not Resolved]
  - Somnolence [Unknown]
  - Wrist fracture [Recovering/Resolving]
  - Back pain [Not Recovered/Not Resolved]
  - Fall [Not Recovered/Not Resolved]
  - Neck pain [Not Recovered/Not Resolved]
  - Magnetic resonance imaging brain abnormal [Unknown]
  - Muscle strain [Not Recovered/Not Resolved]
  - Dry mouth [Unknown]
  - Loss of consciousness [Unknown]
  - Balance disorder [Not Recovered/Not Resolved]
  - Musculoskeletal stiffness [Not Recovered/Not Resolved]
  - Hypoacusis [Not Recovered/Not Resolved]
  - Confusional state [Not Recovered/Not Resolved]
  - Cerebrovascular accident [Not Recovered/Not Resolved]
  - Hemiplegia [Recovered/Resolved]
  - Eye disorder [Not Recovered/Not Resolved]
  - Migraine [Not Recovered/Not Resolved]

NARRATIVE: CASE EVENT DATE: 2019
